FAERS Safety Report 7978188-5 (Version None)
Quarter: 2011Q4

REPORT INFORMATION
  Report Type: 
  Country: None (occurrence: None)
  Receive Date: 20111202
  Receipt Date: 20111118
  Transmission Date: 20120403
  Serious: Yes (Other)
  Sender: FDA-Public Use
  Company Number: 2011SP054760

PATIENT
  Sex: Male

DRUGS (1)
  1. RIBAVIRIN [Suspect]
     Indication: HEPATITIS C
     Dosage: ;UNK;UNK
     Dates: start: 20040101

REACTIONS (2)
  - ALCOHOL USE [None]
  - ANXIETY [None]
